FAERS Safety Report 5958655-6 (Version None)
Quarter: 2008Q4

REPORT INFORMATION
  Report Type: 
  Country: None (occurrence: None)
  Receive Date: 20081119
  Receipt Date: 20081105
  Transmission Date: 20090506
  Serious: Yes (Hospitalization)
  Sender: FDA-Public Use
  Company Number: AU-AMGEN-US245155

PATIENT
  Sex: Male

DRUGS (34)
  1. PANITUMUMAB [Suspect]
     Indication: COLORECTAL CANCER
     Route: 042
     Dates: start: 20070418, end: 20070912
  2. IRINOTECAN HYDROCHLORIDE [Concomitant]
     Indication: COLORECTAL CANCER
     Route: 041
     Dates: start: 20070418, end: 20070418
  3. IRINOTECAN HYDROCHLORIDE [Concomitant]
     Route: 041
     Dates: start: 20070509, end: 20070613
  4. IRINOTECAN HYDROCHLORIDE [Concomitant]
     Route: 041
     Dates: start: 20070704, end: 20070801
  5. LEUCOVORIN CALCIUM [Concomitant]
     Indication: COLORECTAL CANCER
     Route: 065
  6. FLUOROURACIL [Concomitant]
     Indication: COLORECTAL CANCER
     Route: 040
     Dates: start: 20070418, end: 20070418
  7. FLUOROURACIL [Concomitant]
     Route: 040
     Dates: start: 20070509, end: 20070509
  8. FLUOROURACIL [Concomitant]
     Route: 040
     Dates: start: 20070530, end: 20070530
  9. FLUOROURACIL [Concomitant]
     Route: 041
     Dates: start: 20070418, end: 20070418
  10. FLUOROURACIL [Concomitant]
     Route: 041
     Dates: start: 20070509, end: 20070509
  11. FLUOROURACIL [Concomitant]
     Route: 041
     Dates: start: 20070530, end: 20070803
  12. OXYCONTIN [Concomitant]
     Route: 048
  13. AMITRIPTYLINE HCL [Concomitant]
     Route: 048
  14. ACETAMINOPHEN [Concomitant]
     Route: 048
  15. LIPITOR [Concomitant]
     Route: 048
  16. MOVICOL [Concomitant]
     Route: 048
  17. PANADEINE [Concomitant]
     Route: 048
     Dates: start: 20070301, end: 20070501
  18. LIPITOR [Concomitant]
     Route: 048
  19. PANAMAX [Concomitant]
     Route: 048
     Dates: end: 20070718
  20. ZOLPIDEM [Concomitant]
     Route: 048
     Dates: start: 20061129
  21. ACETAMINOPHEN W/ CODEINE [Concomitant]
     Route: 048
     Dates: start: 20070314, end: 20070718
  22. SOMAC [Concomitant]
     Route: 048
     Dates: start: 20070426
  23. ACETAMINOPHEN [Concomitant]
     Route: 048
     Dates: start: 20070418
  24. TROPISETRON [Concomitant]
     Route: 042
     Dates: start: 20070418, end: 20070803
  25. DEXAMETHASONE 0.5MG TAB [Concomitant]
     Route: 042
     Dates: start: 20070418, end: 20070803
  26. DEXAMETHASONE 0.5MG TAB [Concomitant]
     Route: 048
     Dates: start: 20070912
  27. ATROPINE [Concomitant]
     Route: 058
     Dates: start: 20070418, end: 20070801
  28. ZYRTEC [Concomitant]
     Route: 047
     Dates: start: 20070418, end: 20070801
  29. MOVICOL [Concomitant]
     Route: 048
     Dates: start: 20070704, end: 20070718
  30. MICROLAX [Concomitant]
     Route: 048
     Dates: start: 20070704, end: 20070718
  31. TELFAST [Concomitant]
     Route: 048
     Dates: start: 20070815
  32. PANTOPRAZOLE SODIUM [Concomitant]
     Route: 048
     Dates: start: 20070912
  33. OXYCODONE HCL [Concomitant]
     Route: 048
     Dates: start: 20070912
  34. DOXYCYCLINE [Concomitant]
     Route: 048
     Dates: start: 20070912

REACTIONS (1)
  - PERINEPHRIC COLLECTION [None]
